FAERS Safety Report 8821123 (Version 1)
Quarter: 2012Q4

REPORT INFORMATION
  Report Type: 
  Country: NL (occurrence: NL)
  Receive Date: 20121002
  Receipt Date: 20121002
  Transmission Date: 20130627
  Serious: Yes (Other)
  Sender: FDA-Public Use
  Company Number: NL-ARROW-2012-16948

PATIENT
  Age: 62 Year
  Sex: Male

DRUGS (6)
  1. FUROSEMIDE (UNKNOWN) [Suspect]
     Indication: OEDEMA PERIPHERAL
     Dosage: 40 mg, daily
     Route: 065
  2. PERINDOPRIL [Suspect]
     Indication: HYPERTENSION
     Dosage: 4 mg, daily
     Route: 065
  3. LICORICE [Suspect]
     Indication: PRODUCT USED FOR UNKNOWN INDICATION
     Dosage: UNK
     Route: 065
  4. SALMETEROL [Concomitant]
     Indication: ASTHMA
  5. FLUTICASONE [Concomitant]
     Indication: ASTHMA
  6. TIOTROPIUM [Concomitant]
     Indication: ASTHMA

REACTIONS (3)
  - Drug abuse [Recovered/Resolved]
  - Metabolic alkalosis [Recovered/Resolved]
  - Overdose [Recovered/Resolved]
